FAERS Safety Report 22158620 (Version 1)
Quarter: 2023Q1

REPORT INFORMATION
  Report Type: Spontaneous
  Country: US (occurrence: US)
  Receive Date: 20230331
  Receipt Date: 20230331
  Transmission Date: 20230418
  Serious: Yes (Hospitalization, Other)
  Sender: FDA-Public Use
  Company Number: US-ROCHE-2138867

PATIENT
  Age: 67 Year
  Sex: Male
  Weight: 81.269 kg

DRUGS (47)
  1. VALGANCICLOVIR [Suspect]
     Active Substance: VALGANCICLOVIR
     Indication: Lung transplant
     Dosage: 450 MG TWICE IN A DAY
     Route: 048
  2. VALGANCICLOVIR [Suspect]
     Active Substance: VALGANCICLOVIR
     Indication: Cytomegalovirus infection
     Dosage: 450 MG TWICE IN A DAY
     Route: 048
  3. VALGANCICLOVIR [Suspect]
     Active Substance: VALGANCICLOVIR
     Indication: Lung transplant
     Dosage: 50 MG/ML ORAL LIQUID 450 MG-9ML, FEED TUBE, QAM
     Route: 048
  4. VALGANCICLOVIR [Suspect]
     Active Substance: VALGANCICLOVIR
     Indication: Cytomegalovirus infection
     Dosage: 50 MG/ML ORAL LIQUID 450 MG-9ML, FEED TUBE, QAM
     Route: 048
  5. CLONAZEPAM [Suspect]
     Active Substance: CLONAZEPAM
     Indication: Product used for unknown indication
     Dosage: AS NEEDED?0.5 MG, THREE TIMES A DAY
     Route: 048
  6. CELLCEPT [Suspect]
     Active Substance: MYCOPHENOLATE MOFETIL
     Indication: Lung transplant
     Dosage: 250 MG TWICE IN A DAY
     Route: 048
  7. CELLCEPT [Suspect]
     Active Substance: MYCOPHENOLATE MOFETIL
     Indication: Lung transplant
     Dosage: 500 MG, TWO TIMES A DAY
  8. CELLCEPT [Suspect]
     Active Substance: MYCOPHENOLATE MOFETIL
     Indication: Lung transplant
     Dosage: 750 MG TWO TIMES A DAY ?200 MG/ML ORAL SUSPENSION
     Route: 048
  9. ACETAMINOPHEN [Concomitant]
     Active Substance: ACETAMINOPHEN
     Indication: Pain
     Dosage: TAKE 1-2 TAB EVERY 6 HOURS AS NEEDED
     Route: 048
  10. ALENDRONATE SODIUM [Concomitant]
     Active Substance: ALENDRONATE SODIUM
     Route: 048
  11. ARNUITY ELLIPTA [Concomitant]
     Active Substance: FLUTICASONE FUROATE
     Dosage: 100MCG/ACT AEROSOLE POWDER BREATH ACTIVATED.?INHALE 1 PUFF DAILY
     Route: 045
  12. AZITHROMYCIN [Concomitant]
     Active Substance: AZITHROMYCIN
     Dosage: TAKE 1 TABLET BY MOUTH DAILY MONDAY, WEDNESDAY AND FRIDAY
     Route: 048
  13. DOCUSATE SODIUM [Concomitant]
     Active Substance: DOCUSATE SODIUM
     Dosage: 100 MG 2 TIMES A DAY
     Route: 048
  14. MAGNESIUM OXIDE [Concomitant]
     Active Substance: MAGNESIUM OXIDE
     Dosage: 400 MG 2 TIMES A DAY
     Route: 048
  15. MAGNESIUM OXIDE [Concomitant]
     Active Substance: MAGNESIUM OXIDE
     Dosage: 800 MG 3 TIMES A DAY
     Route: 048
  16. MELATONIN [Concomitant]
     Active Substance: MELATONIN
     Dosage: AT BEDTIME
     Route: 048
  17. NYSTATIN [Concomitant]
     Active Substance: NYSTATIN
     Dosage: 100000 UNIT/ML SUSPENSION.?SWISH AND SWALLOW?5 ML 4 TIMES A DAY
     Route: 048
  18. OMEPRAZOLE [Concomitant]
     Active Substance: OMEPRAZOLE
     Dosage: 20 MG ENTERIC COATED CAPSULE 2 TIMES IN 1 DAY
     Route: 048
  19. ONDANSETRON HCL [Concomitant]
     Active Substance: ONDANSETRON HYDROCHLORIDE
     Indication: Nausea
     Dosage: AS NEEDED
     Route: 048
  20. PENTAM [Concomitant]
     Active Substance: PENTAMIDINE ISETHIONATE
     Dosage: 300 MG INJECTION SOLUTION RECONSTITUTED?VIA SVN
  21. POLYETHYLENE GLYCOL [Concomitant]
     Active Substance: POLYETHYLENE GLYCOL
     Dosage: 3350 PACKET,?TAKE 1 PACKET TWICE DAILY AS NEEDED.
     Route: 048
  22. PRAVASTATIN SODIUM [Concomitant]
     Active Substance: PRAVASTATIN SODIUM
     Dosage: TAKE 1 TABLET BY MOUTH EVERY EVENING
     Route: 048
  23. PREDNISONE [Concomitant]
     Active Substance: PREDNISONE
     Indication: Lung transplant
     Dosage: 1 TABLET
     Route: 048
  24. PROPRANOLOL HYDROCHLORIDE [Concomitant]
     Active Substance: PROPRANOLOL HYDROCHLORIDE
     Dosage: 20 MG 3 TIMES IN A DAY
     Route: 048
  25. SERTRALINE HYDROCHLORIDE [Concomitant]
     Active Substance: SERTRALINE HYDROCHLORIDE
     Route: 048
  26. SERTRALINE HYDROCHLORIDE [Concomitant]
     Active Substance: SERTRALINE HYDROCHLORIDE
     Route: 048
  27. SPORANOX [Concomitant]
     Active Substance: ITRACONAZOLE
     Dosage: 10 MG/ML ORAL SOLUTION?10 ML 2 TIMES IN A DAY
     Route: 048
  28. TACROLIMUS [Concomitant]
     Active Substance: TACROLIMUS
     Dosage: QAM, QPM 0.5MG
     Route: 048
  29. TACROLIMUS [Concomitant]
     Active Substance: TACROLIMUS
     Dosage: 1.5 MG 2 TIMES IN A DAY
  30. TRAZODONE HCL [Concomitant]
     Active Substance: TRAZODONE HYDROCHLORIDE
     Indication: Insomnia
     Dosage: AT BEDTIME
     Route: 048
  31. COUMADIN [Concomitant]
     Active Substance: WARFARIN SODIUM
     Indication: Deep vein thrombosis
  32. AMIODARONE [Concomitant]
     Active Substance: AMIODARONE
  33. BACTRIM [Concomitant]
     Active Substance: SULFAMETHOXAZOLE\TRIMETHOPRIM
     Dosage: 400MG-80MG TABLET?TAKE 1 TABLET PO
     Route: 048
  34. COLACE [Concomitant]
     Active Substance: DOCUSATE SODIUM
     Dosage: 100 MG 2 TIMES IN A DAY
     Route: 048
  35. ELIQUIS [Concomitant]
     Active Substance: APIXABAN
     Dosage: 1 TABLET?2.5 MG 2 TIMES IN A DAY
  36. FLOMAX [Concomitant]
     Active Substance: TAMSULOSIN HYDROCHLORIDE
     Dosage: 1 CAPSULE
     Route: 048
  37. INSULIN GLARGINE [Concomitant]
     Active Substance: INSULIN GLARGINE
     Dosage: 10 UNIT DAILY
     Route: 058
  38. METOPROLOL TARTRATE [Concomitant]
     Active Substance: METOPROLOL TARTRATE
     Dosage: 25 MG 2 TIMES IN 1 DAY
     Route: 048
  39. MIRTAZAPINE [Concomitant]
     Active Substance: MIRTAZAPINE
     Dosage: 1 TABLET QHS
     Route: 048
  40. NOVOLOG [Concomitant]
     Active Substance: INSULIN ASPART
     Dosage: 1-14 UNIT PER SCALE, BEFORE MEALS?3 TIMES IN A DAY
     Route: 058
  41. POSACONAZOLE [Concomitant]
     Active Substance: POSACONAZOLE
     Dosage: 400MG=10ML?2 TIMES IN A DAY
     Route: 048
  42. PRIMIDONE [Concomitant]
     Active Substance: PRIMIDONE
     Dosage: 50 MG 2 TIMES IN A DAY
     Route: 048
  43. RANITIDINE [Concomitant]
     Active Substance: RANITIDINE
     Route: 048
  44. TYLENOL [Concomitant]
     Active Substance: ACETAMINOPHEN
     Dosage: EVERY 6 HOURS AS NEEDED
     Route: 048
  45. CALCIUM [Concomitant]
     Active Substance: CALCIUM
  46. INSULIN ASPART [Concomitant]
     Active Substance: INSULIN ASPART
  47. Oyster shell calcium with vitamin D3 [Concomitant]

REACTIONS (9)
  - Leukopenia [Not Recovered/Not Resolved]
  - White blood cell count decreased [Unknown]
  - Product use in unapproved indication [Unknown]
  - Fatigue [Unknown]
  - Pleural effusion [Not Recovered/Not Resolved]
  - Atelectasis [Unknown]
  - Productive cough [Unknown]
  - Aspiration [Unknown]
  - Pulmonary function test decreased [Unknown]

NARRATIVE: CASE EVENT DATE: 20200330
